FAERS Safety Report 8387009-0 (Version None)
Quarter: 2012Q2

REPORT INFORMATION
  Report Type: 
  Country: None (occurrence: None)
  Receive Date: 20120525
  Receipt Date: 20120518
  Transmission Date: 20120825
  Serious: Yes (Death, Other)
  Sender: FDA-Public Use
  Company Number: BE-PFIZER INC-2012122268

PATIENT
  Age: 61 Year
  Sex: Female

DRUGS (8)
  1. METFORMIN [Concomitant]
     Dosage: 500 MG, 1X/DAY
  2. ATORVASTATIN CALCIUM [Suspect]
     Dosage: 10 MG, 1X/DAY
  3. TRAMADOL [Concomitant]
     Dosage: 100 MG, TWICE DAILY AS NEEDED
  4. NAPROXEN [Suspect]
     Indication: ARTHRITIS
     Dosage: 500 MG, THREE TIMES A DAY AND AS NEEDED
  5. LISINOPRIL AND HYDROCHLOROTHIAZIDE [Concomitant]
     Dosage: 20/12.5 MG, ONCE DAILY
  6. RANITIDINE [Concomitant]
     Dosage: 500 MG, 1X/DAY
  7. ALLOPURINOL [Concomitant]
     Dosage: 300 MG, 1X/DAY
  8. QUININE SULFATE [Concomitant]
     Dosage: 100 MG, 1X/DAY

REACTIONS (28)
  - TOXIC EPIDERMAL NECROLYSIS [None]
  - DEHYDRATION [None]
  - MUSCLE NECROSIS [None]
  - BLOOD CREATINE PHOSPHOKINASE INCREASED [None]
  - BRADYCARDIA [None]
  - LYMPHOCYTE STIMULATION TEST POSITIVE [None]
  - RHABDOMYOLYSIS [None]
  - RENAL FAILURE ACUTE [None]
  - TOXICITY TO VARIOUS AGENTS [None]
  - BLOOD PH DECREASED [None]
  - PO2 INCREASED [None]
  - BASE EXCESS DECREASED [None]
  - BLOOD POTASSIUM DECREASED [None]
  - RENAL TUBULAR NECROSIS [None]
  - BLOOD BICARBONATE DECREASED [None]
  - BLOOD LACTIC ACID [None]
  - RESPIRATORY FAILURE [None]
  - HYPOTENSION [None]
  - SINUS TACHYCARDIA [None]
  - MULTI-ORGAN FAILURE [None]
  - PCO2 DECREASED [None]
  - CARDIAC ARREST [None]
  - CONTINUOUS HAEMODIAFILTRATION [None]
  - RENAL INFARCT [None]
  - DISSEMINATED INTRAVASCULAR COAGULATION [None]
  - HEPATIC FAILURE [None]
  - SEPSIS SYNDROME [None]
  - HYPERURICAEMIA [None]
